FAERS Safety Report 6839538-6 (Version None)
Quarter: 2010Q3

REPORT INFORMATION
  Report Type: 
  Country: None (occurrence: None)
  Receive Date: 20100714
  Receipt Date: 20100302
  Transmission Date: 20110219
  Serious: No
  Sender: FDA-Public Use
  Company Number: A0836866A

PATIENT
  Age: 79 Year
  Sex: Female

DRUGS (4)
  1. FLOVENT [Suspect]
     Indication: ASTHMA
     Dosage: 2PUFF TWICE PER DAY
     Route: 055
  2. PREDNISOLONE [Concomitant]
  3. UNKNOWN MEDICATION [Concomitant]
  4. ALBUTEROL [Concomitant]

REACTIONS (2)
  - DRUG INEFFECTIVE [None]
  - PRODUCT QUALITY ISSUE [None]
